FAERS Safety Report 5968250-0 (Version None)
Quarter: 2008Q4

REPORT INFORMATION
  Report Type: 
  Country: None (occurrence: None)
  Receive Date: 20081126
  Receipt Date: 20081124
  Transmission Date: 20090506
  Serious: Yes (Death)
  Sender: FDA-Public Use
  Company Number: US-GILEAD-2008-0018950

PATIENT
  Sex: Female
  Weight: 98.064 kg

DRUGS (18)
  1. LETAIRIS [Suspect]
     Indication: PULMONARY ARTERIAL HYPERTENSION
     Route: 048
     Dates: start: 20080904, end: 20081111
  2. LETAIRIS [Suspect]
     Route: 048
     Dates: start: 20080521, end: 20080903
  3. TORSEMIDE [Concomitant]
  4. DIOVAN [Concomitant]
  5. TENORMIN [Concomitant]
  6. NITROGLYCERIN [Concomitant]
  7. ISOSORBIDE MN [Concomitant]
  8. ASPIRIN [Concomitant]
  9. CEFTIN [Concomitant]
  10. LYRICA [Concomitant]
  11. DARVOCET-N 100 [Concomitant]
  12. CRESTOR [Concomitant]
  13. ZETIA [Concomitant]
  14. METOCLOPRAMIDE [Concomitant]
  15. NEXIUM [Concomitant]
  16. FORTICAL [Concomitant]
  17. CALCIUM +D [Concomitant]
  18. VITAMIN B-12 [Concomitant]

REACTIONS (1)
  - CARDIAC FAILURE CONGESTIVE [None]
